FAERS Safety Report 10880600 (Version 3)
Quarter: 2016Q4

REPORT INFORMATION
  Report Type: Spontaneous
  Country: US (occurrence: US)
  Receive Date: 20150303
  Receipt Date: 20161223
  Transmission Date: 20170206
  Serious: Yes (Hospitalization, Other)
  Sender: FDA-Public Use
  Company Number: US-ABBVIE-15K-163-1351920-00

PATIENT
  Age: 28 Year
  Sex: Female

DRUGS (4)
  1. BUDESONIDE. [Concomitant]
     Active Substance: BUDESONIDE
     Indication: PRODUCT USED FOR UNKNOWN INDICATION
  2. HUMIRA [Suspect]
     Active Substance: ADALIMUMAB
     Route: 058
     Dates: end: 201412
  3. HUMIRA [Suspect]
     Active Substance: ADALIMUMAB
     Indication: CROHN^S DISEASE
     Route: 058
     Dates: start: 201107, end: 201107
  4. HUMIRA [Suspect]
     Active Substance: ADALIMUMAB
     Route: 058
     Dates: start: 2011, end: 2011

REACTIONS (10)
  - Abdominal pain lower [Unknown]
  - Necrotising fasciitis [Unknown]
  - Dyspnoea [Unknown]
  - Antiphospholipid syndrome [Unknown]
  - Vasculitis [Unknown]
  - Henoch-Schonlein purpura [Not Recovered/Not Resolved]
  - Pulmonary alveolar haemorrhage [Unknown]
  - Pulmonary mass [Unknown]
  - Pulmonary haemorrhage [Unknown]
  - Haemoptysis [Unknown]

NARRATIVE: CASE EVENT DATE: 201412
